FAERS Safety Report 4394407-9 (Version None)
Quarter: 2004Q3

REPORT INFORMATION
  Report Type: 
  Country: None (occurrence: None)
  Receive Date: 20040712
  Receipt Date: 20040420
  Transmission Date: 20050211
  Serious: Yes (Other)
  Sender: FDA-Public Use
  Company Number: 200411603JP

PATIENT
  Age: 56 Year
  Sex: Female

DRUGS (4)
  1. KETEK [Suspect]
     Indication: UPPER RESPIRATORY TRACT INFLAMMATION
     Route: 048
     Dates: start: 20040415, end: 20040416
  2. GRANDAXIN [Concomitant]
     Indication: AUTONOMIC NERVOUS SYSTEM IMBALANCE
     Route: 048
     Dates: start: 20040309
  3. SUNRYTHM [Concomitant]
     Indication: VENTRICULAR EXTRASYSTOLES
     Route: 048
     Dates: start: 20040317
  4. PA [Concomitant]
     Indication: UPPER RESPIRATORY TRACT INFLAMMATION
     Route: 048
     Dates: start: 20040415, end: 20040416

REACTIONS (1)
  - VISION BLURRED [None]
